FAERS Safety Report 8599535-X (Version None)
Quarter: 2012Q3

REPORT INFORMATION
  Report Type: 
  Country: None (occurrence: None)
  Receive Date: 20120808
  Receipt Date: 20120808
  Transmission Date: 20120928
  Serious: Yes (Hospitalization)
  Sender: FDA-Public Use
  Company Number: None

PATIENT
  Age: 7 Year
  Sex: Male
  Weight: 21.9 kg

DRUGS (1)
  1. KINERET [Suspect]
     Indication: CHRONIC INFANTILE NEUROLOGICAL CUTANEOUS AND ARTICULAR SYNDROME
     Dosage: 5.5MG/KG/DAY

REACTIONS (4)
  - DENTAL CARIES [None]
  - PHARYNGEAL ERYTHEMA [None]
  - LYMPHADENOPATHY [None]
  - TONSILLAR DISORDER [None]
